FAERS Safety Report 9306618 (Version 1)
Quarter: 2013Q1

REPORT INFORMATION
  Report Type: Spontaneous
  Country: JP (occurrence: None)
  Receive Date: 20130221
  Receipt Date: 20130221
  Transmission Date: 20140127
  Serious: Yes (Hospitalization, Other)
  Sender: FDA-Public Use
  Company Number: 2012-048795

PATIENT
  Age: 69 Year
  Sex: Male
  Weight: 57 kg

DRUGS (5)
  1. VEGF TRAP-EYE (INJECTION) (VEGF TRAP) [Suspect]
     Indication: DIABETIC RETINAL OEDEMA
     Dosage: 2 MG VEGF- TRAY EYE Q4
     Route: 031
     Dates: start: 20110913, end: 20120327
  2. AMARYL (GLIMEPIRIDE) TABLET [Concomitant]
  3. BASEN (VOGLIBOSE) [Concomitant]
  4. LIPITOR (ATORVASTATIN CALCIUM) [Concomitant]
  5. DIOVAN (VALSARTAN) TABLET [Concomitant]

REACTIONS (2)
  - Myocardial ischaemia [None]
  - Coronary artery disease [None]
